FAERS Safety Report 23140076 (Version 3)
Quarter: 2023Q4

REPORT INFORMATION
  Report Type: Spontaneous
  Country: US (occurrence: US)
  Receive Date: 20231102
  Receipt Date: 20231211
  Transmission Date: 20240109
  Serious: No
  Sender: FDA-Public Use
  Company Number: US-PFIZER INC-PV202300176985

PATIENT
  Age: 72 Year
  Sex: Female

DRUGS (5)
  1. IBRANCE [Suspect]
     Active Substance: PALBOCICLIB
     Indication: Breast cancer female
     Dosage: 125 MG
  2. IBRANCE [Suspect]
     Active Substance: PALBOCICLIB
     Dosage: 100 MG TABLET ORALLY EVERY 12 HOURS, TAKE WITH OR WITHOUT FOOD
     Route: 048
  3. IBRANCE [Suspect]
     Active Substance: PALBOCICLIB
     Dosage: 100 MG 1 TABLET ORALLY DAILY, TAKE ON DAYS 1-21 OF A 28 DAY, TAKE WITH OR WITHOUT FOOD
     Route: 048
  4. IBRANCE [Suspect]
     Active Substance: PALBOCICLIB
     Dosage: 125 MG 1 TABLET ORALLY DAILY, TAKE ON DAYS 1-21 OF A 28 DAY, TAKE WITH OR WITHOUT FOOD
     Route: 048
  5. LETROZOLE [Concomitant]
     Active Substance: LETROZOLE
     Dosage: UNK

REACTIONS (3)
  - Confusional state [Unknown]
  - Off label use [Unknown]
  - Product dispensing error [Unknown]
